FAERS Safety Report 13995695 (Version 3)
Quarter: 2018Q1

REPORT INFORMATION
  Report Type: Spontaneous
  Country: US (occurrence: US)
  Receive Date: 20170921
  Receipt Date: 20180201
  Transmission Date: 20180508
  Serious: Yes (Other)
  Sender: FDA-Public Use
  Company Number: US-PFIZER INC-2017407403

PATIENT
  Age: 50 Year
  Sex: Female
  Weight: 63.5 kg

DRUGS (4)
  1. DESVENLAFAXINE SUCCINATE. [Suspect]
     Active Substance: DESVENLAFAXINE SUCCINATE
     Indication: ANXIETY
     Dosage: 50 MG, 1X/DAY
     Route: 048
     Dates: start: 20171227, end: 20180106
  2. CLONAZEPAM. [Concomitant]
     Active Substance: CLONAZEPAM
     Indication: ANXIETY
     Dosage: UNK
     Route: 048
     Dates: start: 19970327
  3. PRISTIQ EXTENDED-RELEASE [Suspect]
     Active Substance: DESVENLAFAXINE SUCCINATE
     Indication: ANXIETY
     Dosage: 50 MG, 1X/DAY (EVERY MORNING)
     Route: 048
     Dates: start: 201603
  4. CLONAZEPAM. [Concomitant]
     Active Substance: CLONAZEPAM
     Indication: SLEEP DISORDER
     Dosage: 1 MG, 2X/DAY
     Route: 048
     Dates: start: 2016

REACTIONS (8)
  - Feeling abnormal [Unknown]
  - Anxiety [Unknown]
  - Weight decreased [Recovered/Resolved]
  - Withdrawal syndrome [Not Recovered/Not Resolved]
  - Irritability [Unknown]
  - Drug dose omission [Not Recovered/Not Resolved]
  - Mood swings [Unknown]
  - Crying [Unknown]

NARRATIVE: CASE EVENT DATE: 2016
